FAERS Safety Report 25276628 (Version 1)
Quarter: 2025Q2

REPORT INFORMATION
  Report Type: Spontaneous
  Country: US (occurrence: US)
  Receive Date: 20250507
  Receipt Date: 20250507
  Transmission Date: 20250717
  Serious: Yes (Hospitalization)
  Sender: ROCHE
  Company Number: US-ROCHE-10000274024

PATIENT
  Sex: Female

DRUGS (1)
  1. ENSPRYNG [Suspect]
     Active Substance: SATRALIZUMAB-MWGE
     Indication: Product used for unknown indication
     Route: 065
     Dates: start: 202409

REACTIONS (3)
  - Pneumonia [Recovering/Resolving]
  - Neutrophil count decreased [Unknown]
  - Pigmentation disorder [Not Recovered/Not Resolved]
